FAERS Safety Report 6010257-1 (Version None)
Quarter: 2008Q4

REPORT INFORMATION
  Report Type: 
  Country: None (occurrence: None)
  Receive Date: 20081218
  Receipt Date: 20080321
  Transmission Date: 20090506
  Serious: No
  Sender: FDA-Public Use
  Company Number: A0713558A

PATIENT
  Age: 9 Year
  Sex: Female
  Weight: 43.9 kg

DRUGS (2)
  1. FLONASE [Suspect]
     Route: 055
     Dates: start: 20070213, end: 20080303
  2. ALBUTEROL [Concomitant]
     Dosage: 2PUFF AS REQUIRED

REACTIONS (3)
  - DYSGEUSIA [None]
  - INTENTIONAL DRUG MISUSE [None]
  - MEDICATION ERROR [None]
